FAERS Safety Report 7772288-0 (Version None)
Quarter: 2011Q3

REPORT INFORMATION
  Report Type: 
  Country: None (occurrence: None)
  Receive Date: 20110922
  Receipt Date: 20110303
  Transmission Date: 20111222
  Serious: No
  Sender: FDA-Public Use
  Company Number: US-ASTRAZENECA-2011SE04401

PATIENT
  Age: 796 Month
  Sex: Female

DRUGS (12)
  1. SEROQUEL XR [Suspect]
     Route: 048
     Dates: start: 20110204
  2. DEPAKOTE [Concomitant]
     Indication: DEPRESSION
  3. SEROQUEL XR [Suspect]
     Indication: BIPOLAR DISORDER
     Route: 048
  4. SEROQUEL XR [Suspect]
     Route: 048
     Dates: start: 20041026
  5. LAMOTRIGINE [Concomitant]
     Indication: BIPOLAR DISORDER
  6. LITHIUM CARBONATE [Concomitant]
     Indication: BIPOLAR DISORDER
  7. SEROQUEL XR [Suspect]
     Indication: DEPRESSION
     Route: 048
  8. SEROQUEL XR [Suspect]
     Route: 048
     Dates: start: 20041026
  9. SEROQUEL XR [Suspect]
     Route: 048
     Dates: start: 20110204
  10. LAMOTRIGINE [Concomitant]
     Indication: DEPRESSION
  11. LITHIUM CARBONATE [Concomitant]
     Indication: DEPRESSION
  12. DEPAKOTE [Concomitant]
     Indication: BIPOLAR DISORDER

REACTIONS (2)
  - NIPPLE DISORDER [None]
  - WEIGHT INCREASED [None]
